FAERS Safety Report 8022534-3 (Version None)
Quarter: 2012Q1

REPORT INFORMATION
  Report Type: 
  Country: None (occurrence: None)
  Receive Date: 20120104
  Receipt Date: 20111221
  Transmission Date: 20120608
  Serious: Yes (Hospitalization)
  Sender: FDA-Public Use
  Company Number: US-GLAXOSMITHKLINE-A0922069A

PATIENT
  Age: 58 Year
  Sex: Male

DRUGS (5)
  1. ATROVENT [Concomitant]
  2. GLUCOTROL XL [Concomitant]
  3. ZOCOR [Concomitant]
  4. GLUCOPHAGE [Concomitant]
  5. AVANDIA [Suspect]
     Indication: DIABETES MELLITUS
     Dosage: 4MG TWICE PER DAY
     Route: 048
     Dates: end: 20070101

REACTIONS (4)
  - TRANSIENT ISCHAEMIC ATTACK [None]
  - CORONARY ARTERY DISEASE [None]
  - NERVOUS SYSTEM DISORDER [None]
  - CARDIOVASCULAR DISORDER [None]
